FAERS Safety Report 8985655 (Version 3)
Quarter: 2013Q1

REPORT INFORMATION
  Report Type: Spontaneous
  Country: US (occurrence: US)
  Receive Date: 20121226
  Receipt Date: 20130312
  Transmission Date: 20140127
  Serious: No
  Sender: FDA-Public Use
  Company Number: US-PFIZER INC-2012322977

PATIENT
  Age: 57 Year
  Sex: Female
  Weight: 91 kg

DRUGS (6)
  1. GENOTROPIN MQ [Suspect]
     Indication: GROWTH HORMONE DEFICIENCY
     Dosage: 4 MG, UNK
     Dates: start: 2012
  2. GENOTROPIN MQ [Suspect]
     Indication: HYPOPITUITARISM
     Dosage: 4 MG, 1 X WEEKLY
  3. GENOTROPIN MQ [Suspect]
     Dosage: 2 MG, UNK
  4. GENOTROPIN MQ [Suspect]
     Dosage: 0.4 MG, 1X/DAY
     Route: 058
     Dates: start: 201209, end: 201212
  5. GENOTROPIN MQ [Suspect]
     Dosage: 0.2 MG, ALTERNATE DAY
     Route: 058
  6. LEVOXYL [Concomitant]
     Indication: THYROID DISORDER
     Dosage: 100 UG, DAILY

REACTIONS (3)
  - Insulin-like growth factor increased [Recovered/Resolved]
  - Blood growth hormone increased [Unknown]
  - Pain [Recovered/Resolved]
